FAERS Safety Report 6183754-6 (Version None)
Quarter: 2009Q2

REPORT INFORMATION
  Report Type: 
  Country: None (occurrence: None)
  Receive Date: 20090508
  Receipt Date: 20090504
  Transmission Date: 20091009
  Serious: Yes (Other)
  Sender: FDA-Public Use
  Company Number: US-PURDUE-USA_2009_0038101

PATIENT
  Sex: Female

DRUGS (1)
  1. SENOKOT [Suspect]
     Indication: CONSTIPATION

REACTIONS (2)
  - HEPATIC CIRRHOSIS [None]
  - LOCALISED INTRAABDOMINAL FLUID COLLECTION [None]
